FAERS Safety Report 8902491 (Version 2)
Quarter: 2013Q1

REPORT INFORMATION
  Report Type: Report from Study
  Country: DE (occurrence: DE)
  Receive Date: 20121112
  Receipt Date: 20130122
  Transmission Date: 20140127
  Serious: Yes (Hospitalization, Other)
  Sender: FDA-Public Use
  Company Number: DE-ROCHE-1153949

PATIENT
  Age: 52 Year
  Sex: Female
  Weight: 51 kg

DRUGS (4)
  1. PEG-INTERFERON ALFA 2A [Suspect]
     Indication: CHRONIC HEPATITIS C
     Route: 058
     Dates: start: 20121010, end: 20121024
  2. RIBAVIRIN [Suspect]
     Indication: CHRONIC HEPATITIS C
     Dosage: FREQUENCY: 2-0-3
     Route: 048
     Dates: start: 20121010, end: 20121102
  3. L-THYROXIN [Concomitant]
     Route: 048
     Dates: start: 2009
  4. LEGALON [Concomitant]
     Route: 048
     Dates: start: 1996

REACTIONS (6)
  - Pneumonitis chemical [Recovered/Resolved]
  - Pancytopenia [Unknown]
  - Dyspnoea exertional [Recovered/Resolved]
  - Tachypnoea [Recovered/Resolved]
  - Heart rate increased [Recovered/Resolved]
  - Cough [Recovered/Resolved]
